FAERS Safety Report 5257076-1 (Version None)
Quarter: 2007Q1

REPORT INFORMATION
  Report Type: 
  Country: None (occurrence: None)
  Receive Date: 20070305
  Receipt Date: 20070305
  Transmission Date: 20070707
  Serious: No
  Sender: FDA-Public Use
  Company Number: None

PATIENT
  Age: 61 Year
  Sex: Male
  Weight: 92.9874 kg

DRUGS (1)
  1. PULMICORT TURBUNHALER 200MCG ASTRAZENECA [Suspect]
     Indication: ASTHMA
     Dosage: 4 PUFFS BID PO
     Route: 048
     Dates: start: 20020312, end: 20070302

REACTIONS (2)
  - DYSPNOEA [None]
  - PHARMACEUTICAL PRODUCT COMPLAINT [None]
